FAERS Safety Report 4759218-0 (Version None)
Quarter: 2005Q3

REPORT INFORMATION
  Report Type: 
  Country: None (occurrence: None)
  Receive Date: 20050831
  Receipt Date: 20050815
  Transmission Date: 20060218
  Serious: Yes (Hospitalization)
  Sender: FDA-Public Use
  Company Number: DSA_26901_2005

PATIENT
  Age: 26 Year
  Sex: Male

DRUGS (5)
  1. LORAZEPAM [Suspect]
     Dosage: 50 MG ONCE SL
     Route: 060
     Dates: start: 20050814, end: 20050814
  2. ALPRAZOLAM [Suspect]
     Dosage: 15 MG ONCE PO
     Route: 048
     Dates: start: 20050814, end: 20050814
  3. ALCOHOL [Suspect]
     Dosage: DF ONCE PO
     Route: 048
     Dates: start: 20050814, end: 20050814
  4. MAPROTILINE [Suspect]
     Dosage: 200 MG ONCE PO
     Route: 048
     Dates: start: 20050814, end: 20050814
  5. TRAMADOL HCL [Suspect]
     Dosage: 500 MG ONCE PO
     Route: 048
     Dates: start: 20050814, end: 20050814

REACTIONS (5)
  - DRUG ABUSER [None]
  - INTENTIONAL MISUSE [None]
  - MIOSIS [None]
  - MULTIPLE DRUG OVERDOSE [None]
  - SOMNOLENCE [None]
